FAERS Safety Report 9698171 (Version 1)
Quarter: 2013Q4

REPORT INFORMATION
  Report Type: Spontaneous
  Country: FR (occurrence: FR)
  Receive Date: 20131120
  Receipt Date: 20131120
  Transmission Date: 20140711
  Serious: Yes (Death)
  Sender: FDA-Public Use
  Company Number: FR-PFIZER INC-2013326053

PATIENT
  Age: 60 Year
  Sex: Female

DRUGS (13)
  1. XALKORI [Suspect]
     Indication: NON-SMALL CELL LUNG CANCER
     Dosage: 250 MG, 2X/DAY
     Route: 048
     Dates: start: 20130607, end: 20130729
  2. XALKORI [Suspect]
     Dosage: 200 MG, 2X/DAY
     Route: 048
     Dates: start: 20130807, end: 20130829
  3. XALKORI [Suspect]
     Dosage: 200 MG, 1X/DAY
     Route: 048
     Dates: start: 20130909, end: 20130915
  4. INNOHEP [Concomitant]
  5. INEXIUM [Concomitant]
  6. DEROXAT [Concomitant]
  7. ALPRAZOLAM [Concomitant]
  8. TOPALGIC [Concomitant]
  9. SOTALEX [Concomitant]
  10. CORTANCYL [Concomitant]
  11. COAPROVEL [Concomitant]
  12. SIMVASTATIN [Concomitant]
  13. BISOPROLOL [Concomitant]

REACTIONS (1)
  - Neutropenia [Fatal]
